FAERS Safety Report 7097827-7 (Version None)
Quarter: 2010Q4

REPORT INFORMATION
  Report Type: 
  Country: None (occurrence: None)
  Receive Date: 20101103
  Receipt Date: 20101018
  Transmission Date: 20110411
  Serious: Yes (Other)
  Sender: FDA-Public Use
  Company Number: CTI_01243_2010

PATIENT
  Age: 46 Year
  Sex: Female
  Weight: 115.6 kg

DRUGS (19)
  1. ZILEUTON 600 MG [Suspect]
     Indication: ASTHMA
     Dosage: 1200 MG BID ORAL
     Route: 048
  2. SAVELLA [Suspect]
     Indication: FIBROMYALGIA
     Dosage: SEE IMAGE, ORAL
     Route: 048
     Dates: start: 20100601, end: 20100601
  3. SAVELLA [Suspect]
     Indication: FIBROMYALGIA
     Dosage: SEE IMAGE, ORAL
     Route: 048
     Dates: start: 20100601, end: 20100601
  4. SAVELLA [Suspect]
     Indication: FIBROMYALGIA
     Dosage: SEE IMAGE, ORAL
     Route: 048
     Dates: start: 20100601, end: 20100601
  5. SAVELLA [Suspect]
     Indication: FIBROMYALGIA
     Dosage: SEE IMAGE, ORAL
     Route: 048
     Dates: start: 20100701, end: 20100801
  6. SAVELLA [Suspect]
     Indication: FIBROMYALGIA
     Dosage: SEE IMAGE, ORAL
     Route: 048
     Dates: start: 20100801, end: 20100914
  7. THEOPHYLLINE [Suspect]
     Indication: ASTHMA
     Dosage: 200 MG QD ORAL
     Route: 048
  8. MAXAIR [Suspect]
     Indication: ASTHMA
     Dosage: 1 DF BID
  9. ADVAIR HFA [Suspect]
     Indication: ASTHMA
     Dosage: 2 DF BID
  10. PULMICORT [Suspect]
     Indication: ASTHMA
     Dosage: 180 UG BID
  11. XYZAL [Concomitant]
  12. RELPAX [Concomitant]
  13. RHINOCORT [Concomitant]
  14. NEXIUM [Concomitant]
  15. TOPAMAX [Concomitant]
  16. B12-VITAMIN [Concomitant]
  17. PERCOCET [Concomitant]
  18. MULTI-VITAMINS [Concomitant]
  19. CALCIUM + VITAMIN D [Concomitant]

REACTIONS (5)
  - BLOOD PRESSURE INCREASED [None]
  - CATARACT [None]
  - CONDITION AGGRAVATED [None]
  - OVERDOSE [None]
  - SINUSITIS [None]
